FAERS Safety Report 5840974-5 (Version None)
Quarter: 2008Q3

REPORT INFORMATION
  Report Type: 
  Country: None (occurrence: None)
  Receive Date: 20080811
  Receipt Date: 20080728
  Transmission Date: 20090109
  Serious: Yes (Other)
  Sender: FDA-Public Use
  Company Number: CA-GENENTECH-265952

PATIENT
  Age: 13 Year
  Sex: Female

DRUGS (3)
  1. RITUXAN [Suspect]
     Indication: NEPHROTIC SYNDROME
     Dosage: 375 MG/M2, UNK
     Route: 041
  2. MYCOPHENOLATE MOFETIL [Suspect]
     Indication: NEPHROTIC SYNDROME
     Route: 065
  3. INSULIN [Concomitant]
     Indication: DIABETES MELLITUS
     Route: 065

REACTIONS (2)
  - GLOMERULOSCLEROSIS [None]
  - HYPOGLYCAEMIA [None]
